FAERS Safety Report 8222167-X (Version None)
Quarter: 2012Q1

REPORT INFORMATION
  Report Type: 
  Country: None (occurrence: None)
  Receive Date: 20120314
  Receipt Date: 20120229
  Transmission Date: 20120608
  Serious: Yes (Death, Life-Threatening, Hospitalization, Disabling, Other)
  Sender: FDA-Public Use
  Company Number: 2008AL011091

PATIENT
  Sex: Male
  Weight: 73.3466 kg

DRUGS (48)
  1. ADVAIR DISKUS 100/50 [Concomitant]
  2. ATROVENT [Concomitant]
  3. LEVAQUIN [Concomitant]
  4. MIRAPEX [Concomitant]
  5. GLYBURIDE [Concomitant]
  6. KLOR-CON [Concomitant]
  7. LASIX [Concomitant]
  8. POTASSIUM CHLORIDE [Concomitant]
  9. LORTAB [Concomitant]
  10. ALBUTEROL [Concomitant]
  11. COLACE [Concomitant]
  12. DIABETA [Concomitant]
  13. MYLANTA [Concomitant]
  14. PHENERGAN HCL [Concomitant]
  15. PHENAZOPYRIDINE HCL TAB [Concomitant]
  16. PROMETHAZINE [Concomitant]
  17. ASPIRIN [Concomitant]
  18. CARDIZEM [Concomitant]
  19. FLOMAX [Concomitant]
  20. DIGOXIN [Suspect]
     Indication: ARRHYTHMIA
     Dosage: 0.25 MG;UNK;PO
     Route: 048
     Dates: start: 20070314, end: 20081123
  21. DIGOXIN [Suspect]
     Indication: ATRIAL FIBRILLATION
     Dosage: 0.25 MG;UNK;PO
     Route: 048
     Dates: start: 20070314, end: 20081123
  22. DIGOXIN [Suspect]
     Indication: CARDIAC FAILURE CONGESTIVE
     Dosage: 0.25 MG;UNK;PO
     Route: 048
     Dates: start: 20070314, end: 20081123
  23. ACIPHEX [Concomitant]
  24. AVANDIA [Concomitant]
  25. BACTRIM [Concomitant]
  26. COMBIVENT [Concomitant]
  27. POTASSIUM [Concomitant]
  28. PROTONIX [Concomitant]
  29. TYLENOL [Concomitant]
  30. CARAFATE [Concomitant]
  31. COUMADIN [Concomitant]
  32. DILTIAZEM HCL [Concomitant]
  33. LEXAPRO [Concomitant]
  34. PREDNISONE TAB [Concomitant]
  35. ZITHROMAX [Concomitant]
  36. DARVOCET [Concomitant]
  37. FIORDIL [Concomitant]
  38. FORADIL [Concomitant]
  39. NASONEX [Concomitant]
  40. SYNTHROID [Concomitant]
  41. ZOFRAN [Concomitant]
  42. POTASSIUM CHLORIDE [Concomitant]
  43. AMBIEN [Concomitant]
  44. DUONEB [Concomitant]
  45. PERCOCET [Concomitant]
  46. SPIRIVA [Concomitant]
  47. TUSSIONEX [Concomitant]
  48. TYLENOL W/ CODEINE [Concomitant]

REACTIONS (150)
  - VERTEBRAL FORAMINAL STENOSIS [None]
  - FATIGUE [None]
  - DYSPHAGIA [None]
  - NAUSEA [None]
  - DYSARTHRIA [None]
  - ASTHENIA [None]
  - PLEURAL EFFUSION [None]
  - ACUTE RESPIRATORY FAILURE [None]
  - INCREASED UPPER AIRWAY SECRETION [None]
  - BRONCHOPNEUMONIA [None]
  - POST PROCEDURAL INFECTION [None]
  - ANEURYSM [None]
  - HYPERKALAEMIA [None]
  - HAEMATOCRIT DECREASED [None]
  - SPINAL DEFORMITY [None]
  - BRONCHIECTASIS [None]
  - ATRIAL TACHYCARDIA [None]
  - ELECTROCARDIOGRAM T WAVE ABNORMAL [None]
  - ATRIOVENTRICULAR BLOCK FIRST DEGREE [None]
  - ACQUIRED DIAPHRAGMATIC EVENTRATION [None]
  - CARDIAC ARREST [None]
  - MYOCARDIAL ISCHAEMIA [None]
  - MALNUTRITION [None]
  - VIITH NERVE PARALYSIS [None]
  - CHEST PAIN [None]
  - RESTLESS LEGS SYNDROME [None]
  - BLOOD DISORDER [None]
  - BRONCHITIS [None]
  - BREATH SOUNDS ABNORMAL [None]
  - ATRIAL FLUTTER [None]
  - THYROID DISORDER [None]
  - MEMORY IMPAIRMENT [None]
  - NERVOUS SYSTEM DISORDER [None]
  - INTERNATIONAL NORMALISED RATIO INCREASED [None]
  - FLATULENCE [None]
  - LUNG HYPERINFLATION [None]
  - BLOOD PH DECREASED [None]
  - LYMPHADENOPATHY MEDIASTINAL [None]
  - INTERVERTEBRAL DISC SPACE NARROWING [None]
  - CEREBRAL ARTERIOSCLEROSIS [None]
  - VOMITING [None]
  - HAEMORRHAGE [None]
  - DROOLING [None]
  - CHILLS [None]
  - HYPOTENSION [None]
  - PURULENCE [None]
  - WOUND INFECTION [None]
  - DIAPHRAGMATIC DISORDER [None]
  - DEHYDRATION [None]
  - SYNCOPE [None]
  - SPINAL OSTEOARTHRITIS [None]
  - SUPRAVENTRICULAR EXTRASYSTOLES [None]
  - BLOOD THYROID STIMULATING HORMONE INCREASED [None]
  - HAEMOGLOBIN DECREASED [None]
  - INFECTION [None]
  - VENTRICULAR EXTRASYSTOLES [None]
  - VASCULAR PSEUDOANEURYSM [None]
  - FIBRIN D DIMER INCREASED [None]
  - PARATRACHEAL LYMPHADENOPATHY [None]
  - ABDOMINAL PAIN [None]
  - RENAL FAILURE ACUTE [None]
  - COAGULOPATHY [None]
  - UNRESPONSIVE TO STIMULI [None]
  - RENAL DISORDER [None]
  - CACHEXIA [None]
  - ABDOMINAL DISCOMFORT [None]
  - LETHARGY [None]
  - BURNS SECOND DEGREE [None]
  - DIZZINESS [None]
  - ELECTROCARDIOGRAM ST-T CHANGE [None]
  - PRESYNCOPE [None]
  - EMBOLIC STROKE [None]
  - AORTIC DISORDER [None]
  - TOXICITY TO VARIOUS AGENTS [None]
  - ANHEDONIA [None]
  - RESPIRATORY DISTRESS [None]
  - HYPOXIA [None]
  - TRANSIENT ISCHAEMIC ATTACK [None]
  - ELECTROCARDIOGRAM ABNORMAL [None]
  - PYREXIA [None]
  - HEART VALVE OPERATION [None]
  - URETERAL DISORDER [None]
  - PNEUMONIA BACTERIAL [None]
  - CONDUCTION DISORDER [None]
  - ATRIOVENTRICULAR BLOCK SECOND DEGREE [None]
  - HILAR LYMPHADENOPATHY [None]
  - MEDIASTINAL FIBROSIS [None]
  - PLATELET COUNT DECREASED [None]
  - PULMONARY HAEMORRHAGE [None]
  - LUNG INFILTRATION [None]
  - ASPIRATION [None]
  - BRONCHOSTENOSIS [None]
  - SOMNOLENCE [None]
  - PAIN [None]
  - FAILURE TO THRIVE [None]
  - ARRHYTHMIA [None]
  - CONDITION AGGRAVATED [None]
  - CARDIAC FAILURE CONGESTIVE [None]
  - MENTAL STATUS CHANGES [None]
  - WHEEZING [None]
  - ARTERIOSCLEROSIS CORONARY ARTERY [None]
  - OEDEMA [None]
  - CHEST DISCOMFORT [None]
  - INTERVERTEBRAL DISC PROTRUSION [None]
  - PARANASAL SINUS MUCOSAL HYPERTROPHY [None]
  - CAROTID ARTERIOSCLEROSIS [None]
  - ELECTROCARDIOGRAM QRS COMPLEX ABNORMAL [None]
  - LEFT ATRIAL DILATATION [None]
  - MEDIASTINAL MASS [None]
  - CEREBRAL ATROPHY [None]
  - ANXIETY [None]
  - CHRONIC OBSTRUCTIVE PULMONARY DISEASE [None]
  - ABDOMINAL PAIN LOWER [None]
  - DIARRHOEA [None]
  - PULMONARY EMBOLISM [None]
  - GLUCOSE TOLERANCE IMPAIRED [None]
  - BRONCHOSPASM [None]
  - DYSPNOEA [None]
  - ABASIA [None]
  - APPARENT DEATH [None]
  - HYPOAESTHESIA [None]
  - MYOCARDIAL INFARCTION [None]
  - CARDIAC DISORDER [None]
  - HEADACHE [None]
  - LIMB INJURY [None]
  - LEUKOCYTOSIS [None]
  - PRODUCTIVE COUGH [None]
  - OEDEMA PERIPHERAL [None]
  - MULTIPLE INJURIES [None]
  - AGITATION [None]
  - ATRIAL FIBRILLATION [None]
  - HAEMOPTYSIS [None]
  - STAPHYLOCOCCAL INFECTION [None]
  - ABDOMINAL HERNIA [None]
  - TOBACCO ABUSE [None]
  - TACHYCARDIA [None]
  - BRADYCARDIA [None]
  - FOOT FRACTURE [None]
  - SYSTOLIC DYSFUNCTION [None]
  - TACHYPNOEA [None]
  - RHONCHI [None]
  - ATELECTASIS [None]
  - RALES [None]
  - ECZEMA [None]
  - CHOLELITHIASIS [None]
  - DYSURIA [None]
  - ELECTROCARDIOGRAM REPOLARISATION ABNORMALITY [None]
  - AORTIC DISSECTION [None]
  - ABDOMINAL DISTENSION [None]
  - CARDIOMEGALY [None]
